FAERS Safety Report 8007500-6 (Version None)
Quarter: 2011Q4

REPORT INFORMATION
  Report Type: 
  Country: None (occurrence: None)
  Receive Date: 20111222
  Receipt Date: 20111222
  Transmission Date: 20120403
  Serious: Yes (Hospitalization)
  Sender: FDA-Public Use
  Company Number: None

PATIENT
  Age: 84 Year
  Sex: Male

DRUGS (2)
  1. ENOXAPARIN [Suspect]
     Indication: DEEP VEIN THROMBOSIS
     Dosage: 100 MG BID SQ
     Route: 058
     Dates: start: 20100611
  2. ENOXAPARIN [Suspect]
     Indication: ATRIAL FIBRILLATION
     Dosage: 100 MG BID SQ
     Route: 058
     Dates: start: 20100611

REACTIONS (2)
  - SKIN NECROSIS [None]
  - HEPARIN-INDUCED THROMBOCYTOPENIA [None]
